FAERS Safety Report 11833119 (Version 1)
Quarter: 2015Q4

REPORT INFORMATION
  Report Type: Spontaneous
  Country: US (occurrence: US)
  Receive Date: 20151214
  Receipt Date: 20151214
  Transmission Date: 20160305
  Serious: No
  Sender: FDA-Public Use
  Company Number: US-PERRIGO-14US008497

PATIENT
  Age: 69 Year
  Sex: Female
  Weight: 90.7 kg

DRUGS (2)
  1. MINOXIDIL. [Suspect]
     Active Substance: MINOXIDIL
     Indication: ALOPECIA
     Dosage: 1 ML, BID
     Route: 061
     Dates: start: 201312, end: 20150101
  2. LASIX [Concomitant]
     Active Substance: FUROSEMIDE
     Indication: FLUID RETENTION
     Dosage: UNK
     Route: 048
     Dates: start: 2004

REACTIONS (4)
  - Incorrect drug administration duration [Recovered/Resolved]
  - Trichorrhexis [Not Recovered/Not Resolved]
  - Drug ineffective for unapproved indication [Unknown]
  - Hair texture abnormal [Not Recovered/Not Resolved]

NARRATIVE: CASE EVENT DATE: 201312
